FAERS Safety Report 8324350-1 (Version None)
Quarter: 2012Q2

REPORT INFORMATION
  Report Type: 
  Country: None (occurrence: None)
  Receive Date: 20120430
  Receipt Date: 20120430
  Transmission Date: 20120825
  Serious: Yes (Hospitalization)
  Sender: FDA-Public Use
  Company Number: None

PATIENT
  Age: 61 Year
  Sex: Female
  Weight: 59.4 kg

DRUGS (4)
  1. PACLITAXEL [Suspect]
  2. CARBOPLATIN [Suspect]
     Indication: NEOPLASM MALIGNANT
     Dosage: AUC5/175MG/M2
     Dates: start: 20120409, end: 20120409
  3. RIDAFOROLIMUS [Suspect]
     Indication: NEOPLASM MALIGNANT
     Dosage: 10 MG PO
     Route: 048
     Dates: start: 20120416, end: 20120420
  4. RIDAFOROLIMUS [Suspect]
     Indication: NEOPLASM MALIGNANT
     Dosage: 10 MG PO
     Route: 048
     Dates: start: 20120409, end: 20120413

REACTIONS (8)
  - NAUSEA [None]
  - PYREXIA [None]
  - VOMITING [None]
  - CHILLS [None]
  - NEUTROPENIA [None]
  - BLOOD ALBUMIN DECREASED [None]
  - BLOOD SODIUM DECREASED [None]
  - BLOOD ALKALINE PHOSPHATASE INCREASED [None]
